FAERS Safety Report 17542533 (Version 11)
Quarter: 2021Q1

REPORT INFORMATION
  Report Type: Report from Study
  Country: US (occurrence: US)
  Receive Date: 20200314
  Receipt Date: 20210102
  Transmission Date: 20210419
  Serious: No
  Sender: FDA-Public Use
  Company Number: NVSC2020US071447

PATIENT
  Age: 58 Year
  Sex: Female

DRUGS (1)
  1. COSENTYX [Suspect]
     Active Substance: SECUKINUMAB
     Indication: PSORIASIS
     Dosage: 300 MG, QW (QW FOR 5 WEEKS, THEN Q4W)
     Route: 058
     Dates: start: 20200306

REACTIONS (8)
  - Skin exfoliation [Recovering/Resolving]
  - Blood pressure increased [Unknown]
  - Lethargy [Unknown]
  - Dizziness [Recovered/Resolved]
  - Device issue [Unknown]
  - Pruritus [Recovering/Resolving]
  - Headache [Unknown]
  - Psoriasis [Recovering/Resolving]

NARRATIVE: CASE EVENT DATE: 20200306
